FAERS Safety Report 5848635-3 (Version None)
Quarter: 2008Q3

REPORT INFORMATION
  Report Type: 
  Country: None (occurrence: None)
  Receive Date: 20080818
  Receipt Date: 20080812
  Transmission Date: 20090109
  Serious: Yes (Other)
  Sender: FDA-Public Use
  Company Number: JP-SANOFI-SYNTHELABO-A01200805746

PATIENT
  Sex: Male

DRUGS (4)
  1. ISOVORIN [Suspect]
     Dosage: UNK
     Route: 041
     Dates: start: 20080514, end: 20080514
  2. FLUOROURACIL [Suspect]
     Dosage: UNK
     Route: 042
     Dates: start: 20080514, end: 20080514
  3. AVASTIN [Suspect]
     Route: 041
     Dates: start: 20080424, end: 20080424
  4. ELPLAT [Suspect]
     Indication: COLON CANCER
     Dosage: UNK
     Route: 041
     Dates: start: 20080514, end: 20080514

REACTIONS (3)
  - FLUSHING [None]
  - HYPERTENSION [None]
  - SHOCK [None]
